FAERS Safety Report 12877272 (Version 1)
Quarter: 2016Q4

REPORT INFORMATION
  Report Type: Spontaneous
  Country: US (occurrence: US)
  Receive Date: 20161021
  Receipt Date: 20161021
  Transmission Date: 20170207
  Serious: No
  Sender: FDA-Public Use
  Company Number: None

PATIENT
  Age: 53 Year
  Sex: Female

DRUGS (1)
  1. STELARA [Suspect]
     Active Substance: USTEKINUMAB
     Indication: SKIN DISORDER
     Dosage: STELARA 45MG - SUBCUTANEOUSLY - AT WEEK 0, 4, THEN EVERY 12
     Route: 058
     Dates: start: 20160321, end: 20160718

REACTIONS (1)
  - Alopecia [None]

NARRATIVE: CASE EVENT DATE: 20160922
